FAERS Safety Report 14413296 (Version 2)
Quarter: 2018Q1

REPORT INFORMATION
  Report Type: Report from Study
  Country: US (occurrence: US)
  Receive Date: 20180119
  Receipt Date: 20180319
  Transmission Date: 20180509
  Serious: No
  Sender: FDA-Public Use
  Company Number: PHEH2018US001300

PATIENT
  Sex: Female

DRUGS (1)
  1. TRAVATAN Z [Suspect]
     Active Substance: TRAVOPROST
     Indication: PRODUCT USED FOR UNKNOWN INDICATION
     Dosage: 1 DF (1 DROP AT NIGHT), QHS (BOTH EYES)
     Route: 065

REACTIONS (5)
  - Malaise [Unknown]
  - Dry eye [Unknown]
  - Eye irritation [Unknown]
  - Fatigue [Unknown]
  - Erythema of eyelid [Unknown]
